FAERS Safety Report 6647517-7 (Version None)
Quarter: 2010Q1

REPORT INFORMATION
  Report Type: 
  Country: None (occurrence: None)
  Receive Date: 20100323
  Receipt Date: 20100317
  Transmission Date: 20100710
  Serious: Yes (Hospitalization, Other)
  Sender: FDA-Public Use
  Company Number: US-MERCK-0708USA02938

PATIENT
  Age: 61 Year
  Sex: Female
  Weight: 61 kg

DRUGS (5)
  1. FOSAMAX [Suspect]
     Indication: OSTEOPOROSIS
     Route: 048
     Dates: start: 20030127, end: 20050124
  2. FOSAMAX [Suspect]
     Route: 048
     Dates: end: 20040101
  3. FOSAMAX [Suspect]
     Indication: OSTEOPENIA
     Route: 048
     Dates: start: 20030127, end: 20050124
  4. FOSAMAX [Suspect]
     Route: 048
     Dates: end: 20040101
  5. ACTONEL [Suspect]
     Indication: OSTEOPOROSIS
     Route: 048
     Dates: start: 20050124, end: 20050501

REACTIONS (38)
  - ABDOMINAL DISCOMFORT [None]
  - ADRENAL ADENOMA [None]
  - ALCOHOLISM [None]
  - ANAEMIA [None]
  - ANXIETY [None]
  - ARTHROPATHY [None]
  - BRONCHITIS [None]
  - CAROTID ARTERY STENOSIS [None]
  - CHRONIC OBSTRUCTIVE PULMONARY DISEASE [None]
  - DENTAL CARIES [None]
  - DEPRESSION [None]
  - DIARRHOEA [None]
  - DRY SKIN [None]
  - DYSPHAGIA [None]
  - FEMUR FRACTURE [None]
  - GALLBLADDER DISORDER [None]
  - GASTRIC ULCER HAEMORRHAGE [None]
  - HIP FRACTURE [None]
  - HYPOKALAEMIA [None]
  - LIBIDO DECREASED [None]
  - LUNG NEOPLASM [None]
  - NAUSEA [None]
  - NEPHROLITHIASIS [None]
  - NOCTURIA [None]
  - OSTEOMYELITIS [None]
  - OSTEONECROSIS [None]
  - PAIN [None]
  - PANCREATITIS [None]
  - PERIODONTAL DISEASE [None]
  - RENAL CYST [None]
  - RENAL FAILURE ACUTE [None]
  - SEASONAL ALLERGY [None]
  - TENDONITIS [None]
  - TYPE 2 DIABETES MELLITUS [None]
  - UPPER GASTROINTESTINAL HAEMORRHAGE [None]
  - UPPER LIMB FRACTURE [None]
  - VOMITING [None]
  - WRIST FRACTURE [None]
